FAERS Safety Report 5605352-2 (Version None)
Quarter: 2008Q1

REPORT INFORMATION
  Report Type: 
  Country: None (occurrence: None)
  Receive Date: 20080123
  Receipt Date: 20080107
  Transmission Date: 20080703
  Serious: Yes (Death)
  Sender: FDA-Public Use
  Company Number: PAR_02015_2008

PATIENT
  Age: 56 Year
  Sex: Female

DRUGS (1)
  1. VERAPAMIL HCL [Suspect]
     Indication: DRUG USE FOR UNKNOWN INDICATION
     Dosage: 14.4 G 1X NOT THE PRESCRIBED AMOUNT ORAL
     Route: 048

REACTIONS (14)
  - BLOOD CALCIUM INCREASED [None]
  - BLOOD CREATINE INCREASED [None]
  - BLOOD GLUCOSE INCREASED [None]
  - BLOOD MAGNESIUM DECREASED [None]
  - BLOOD PH DECREASED [None]
  - BLOOD POTASSIUM DECREASED [None]
  - CARDIAC ARREST [None]
  - COMPLETED SUICIDE [None]
  - ELECTROMECHANICAL DISSOCIATION [None]
  - HYPOTENSION [None]
  - ILEUS [None]
  - INCORRECT DOSE ADMINISTERED [None]
  - INTESTINAL ISCHAEMIA [None]
  - POISONING [None]
